FAERS Safety Report 8914874 (Version 1)
Quarter: 2012Q4

REPORT INFORMATION
  Report Type: 
  Country: AU (occurrence: AU)
  Receive Date: 20121119
  Receipt Date: 20121119
  Transmission Date: 20130627
  Serious: Yes (Other)
  Sender: FDA-Public Use
  Company Number: AU-ROCHE-CID000000002220997

PATIENT
  Sex: Female

DRUGS (6)
  1. XELODA [Suspect]
     Indication: NEUROENDOCRINE CARCINOMA
     Route: 048
     Dates: start: 200703, end: 200709
  2. XELODA [Suspect]
     Route: 048
     Dates: start: 200712
  3. AVASTIN [Suspect]
     Indication: PRODUCT USED FOR UNKNOWN INDICATION
     Route: 048
     Dates: start: 200712
  4. TEMODAL [Concomitant]
     Route: 048
     Dates: start: 200703, end: 200709
  5. TEMODAL [Concomitant]
     Route: 048
     Dates: start: 200712
  6. SANDOSTATIN LAR [Concomitant]
     Route: 042

REACTIONS (1)
  - Disease progression [Unknown]
